FAERS Safety Report 11911194 (Version 1)
Quarter: 2016Q1

REPORT INFORMATION
  Report Type: Spontaneous
  Country: FR (occurrence: FR)
  Receive Date: 20160112
  Receipt Date: 20160112
  Transmission Date: 20160526
  Serious: Yes (Hospitalization, Other)
  Sender: FDA-Public Use
  Company Number: FR-MEDTRONIC-1046404

PATIENT
  Age: 49 Year
  Sex: Female

DRUGS (1)
  1. BACLOFEN UNKNOWN [Suspect]
     Active Substance: BACLOFEN
     Dates: start: 20150606, end: 20150606

REACTIONS (6)
  - Coma scale abnormal [None]
  - Coma [Recovered/Resolved]
  - Hypertonia [Unknown]
  - Bradypnoea [Unknown]
  - Agitation [Unknown]
  - Miosis [Unknown]

NARRATIVE: CASE EVENT DATE: 20150606
